FAERS Safety Report 14482534 (Version 1)
Quarter: 2018Q1

REPORT INFORMATION
  Report Type: Report from Study
  Country: FR (occurrence: FR)
  Receive Date: 20180202
  Receipt Date: 20180202
  Transmission Date: 20180509
  Serious: Yes (Hospitalization)
  Sender: FDA-Public Use
  Company Number: PHHO2018FR001392

PATIENT
  Age: 73 Year
  Sex: Female

DRUGS (3)
  1. 5-FLUOROURACIL [Suspect]
     Active Substance: FLUOROURACIL
     Indication: SQUAMOUS CELL CARCINOMA OF HEAD AND NECK
     Dosage: 1150 MG, QD
     Route: 065
     Dates: start: 20150506, end: 20150506
  2. CETUXIMAB. [Suspect]
     Active Substance: CETUXIMAB
     Indication: SQUAMOUS CELL CARCINOMA OF HEAD AND NECK
     Dosage: 355 MG, QD
     Route: 042
     Dates: start: 20150513, end: 20150513
  3. CARBOPLATIN. [Suspect]
     Active Substance: CARBOPLATIN
     Indication: SQUAMOUS CELL CARCINOMA OF HEAD AND NECK
     Dosage: 270 MG, QD
     Route: 065
     Dates: start: 20150506, end: 20150506

REACTIONS (2)
  - Mucosal inflammation [Recovered/Resolved]
  - Conjunctivitis [Recovered/Resolved with Sequelae]

NARRATIVE: CASE EVENT DATE: 20150516
